FAERS Safety Report 23160849 (Version 2)
Quarter: 2024Q2

REPORT INFORMATION
  Report Type: Report from Study
  Country: CA (occurrence: CA)
  Receive Date: 20231108
  Receipt Date: 20240429
  Transmission Date: 20240716
  Serious: Yes (Disabling)
  Sender: FDA-Public Use
  Company Number: CA-VER-202300468

PATIENT
  Age: 76 Year
  Sex: Male

DRUGS (4)
  1. TRIPTORELIN PAMOATE [Suspect]
     Active Substance: TRIPTORELIN PAMOATE
     Indication: Prostate cancer
     Dosage: (11.25 MILLIGRAM(S), 1 IN 3 MONTH), POWDER FOR PROLONGED-RELEASE SUSPENSION FOR INJECT
     Route: 030
     Dates: start: 20230720, end: 20230720
  2. TRIPTORELIN PAMOATE [Suspect]
     Active Substance: TRIPTORELIN PAMOATE
     Indication: Prostate cancer
     Dosage: (11.25 MILLIGRAM(S), 1 IN 3 MONTH), POWDER FOR PROLONGED-RELEASE SUSPENSION FOR INJECT
     Route: 030
     Dates: start: 20231013, end: 20231013
  3. TRIPTORELIN PAMOATE [Suspect]
     Active Substance: TRIPTORELIN PAMOATE
     Indication: Prostate cancer
     Dosage: (11.25 MILLIGRAM(S), 1 IN 3 MONTH), POWDER FOR PROLONGED-RELEASE SUSPENSION FOR INJECT
     Route: 030
     Dates: start: 20240115, end: 20240115
  4. TRIPTORELIN PAMOATE [Suspect]
     Active Substance: TRIPTORELIN PAMOATE
     Indication: Prostate cancer
     Dosage: (11.25 MILLIGRAM(S), 1 IN 3 MONTH), POWDER FOR PROLONGED-RELEASE SUSPENSION FOR INJECT
     Route: 030
     Dates: start: 20240415, end: 20240415

REACTIONS (2)
  - Inappropriate schedule of product administration [Recovered/Resolved]
  - Loss of personal independence in daily activities [Unknown]

NARRATIVE: CASE EVENT DATE: 20231013
